FAERS Safety Report 5407297-X (Version None)
Quarter: 2007Q3

REPORT INFORMATION
  Report Type: 
  Country: None (occurrence: None)
  Receive Date: 20070807
  Receipt Date: 20070730
  Transmission Date: 20080115
  Serious: Yes (Death, Hospitalization)
  Sender: FDA-Public Use
  Company Number: JP-SANOFI-SYNTHELABO-F01200700226

PATIENT
  Sex: Male
  Weight: 56 kg

DRUGS (16)
  1. PROBUCOL [Concomitant]
     Indication: HYPERLIPIDAEMIA
     Dosage: 250 MG
     Route: 048
     Dates: start: 20060921, end: 20070217
  2. DEPAS [Concomitant]
     Indication: INSOMNIA
     Dosage: 0.5 MG
     Route: 048
     Dates: start: 20070131, end: 20070217
  3. DICLOFENAC SODIUM [Concomitant]
     Indication: BACK PAIN
     Dosage: 25 MG
     Dates: start: 20070124, end: 20070217
  4. ISALON [Concomitant]
     Indication: DYSPEPSIA
     Dosage: 1 TABLET
     Route: 048
     Dates: start: 20061214, end: 20070124
  5. SOLETON [Concomitant]
     Indication: BACK PAIN
     Dosage: 80 MG
     Route: 048
     Dates: start: 20061214, end: 20070124
  6. CLOPIDOGREL [Suspect]
     Indication: CEREBROVASCULAR DISORDER
     Dosage: 75 MG
     Route: 048
     Dates: start: 20060927, end: 20061121
  7. CLOPIDOGREL [Suspect]
     Dosage: 50 MG
     Route: 048
     Dates: start: 20061122, end: 20070217
  8. FOY [Concomitant]
     Dosage: 1000 MG
     Route: 042
     Dates: start: 20070217, end: 20070218
  9. OMEPRAZOLE [Concomitant]
     Indication: GASTRITIS PROPHYLAXIS
     Dosage: 10 MG
     Route: 048
     Dates: start: 20070203, end: 20070217
  10. PAXIL [Concomitant]
     Indication: DEPRESSION
     Dosage: 20 MG
     Route: 048
     Dates: start: 20070206, end: 20070217
  11. VOLTAREN [Concomitant]
     Dosage: 10 IN TOTAL, 25 MG BID 50 MG
     Dates: start: 20061228
  12. KETOPROFEN [Concomitant]
     Dosage: 24 SHEETS IN TOTAL
     Route: 062
     Dates: start: 20061214
  13. ASPIRIN [Concomitant]
     Dosage: 100 MG
     Dates: start: 20070216
  14. TSUKUSHI A M POWDER [Concomitant]
     Dosage: 11.7 UNK
  15. MERICUT [Concomitant]
     Indication: BACK PAIN
     Dosage: 50 MG
     Route: 054
     Dates: start: 20070124, end: 20070209
  16. MERICUT [Concomitant]
     Dosage: 25 MG
     Route: 054
     Dates: start: 20070210, end: 20070215

REACTIONS (5)
  - DEPRESSED LEVEL OF CONSCIOUSNESS [None]
  - HAEMOLYTIC ANAEMIA [None]
  - HEPATIC FUNCTION ABNORMAL [None]
  - PLATELET COUNT DECREASED [None]
  - RENAL IMPAIRMENT [None]
